FAERS Safety Report 15498138 (Version 1)
Quarter: 2018Q4

REPORT INFORMATION
  Report Type: Spontaneous
  Country: BE (occurrence: BE)
  Receive Date: 20181015
  Receipt Date: 20181015
  Transmission Date: 20190205
  Serious: Yes (Other)
  Sender: FDA-Public Use
  Company Number: BE-ROCHE-2196913

PATIENT
  Age: 54 Year
  Sex: Female
  Weight: 70 kg

DRUGS (4)
  1. MABTHERA [Suspect]
     Active Substance: RITUXIMAB
     Indication: NON-HODGKIN^S LYMPHOMA
     Dosage: 8 CYCLES
     Route: 042
     Dates: start: 201108
  2. MABTHERA [Suspect]
     Active Substance: RITUXIMAB
     Dosage: 3 CYCLES
     Route: 042
     Dates: start: 201703
  3. VALCYTE [Suspect]
     Active Substance: VALGANCICLOVIR HYDROCHLORIDE
     Indication: CYTOMEGALOVIRUS INFECTION
     Route: 065
     Dates: start: 20180713, end: 20180905
  4. MABTHERA [Suspect]
     Active Substance: RITUXIMAB
     Dosage: 4 CYCLES
     Route: 042
     Dates: start: 201509

REACTIONS (3)
  - Cytomegalovirus infection [Unknown]
  - Off label use [Unknown]
  - Product use in unapproved indication [Unknown]

NARRATIVE: CASE EVENT DATE: 20180709
